FAERS Safety Report 10013815 (Version 1)
Quarter: 2014Q1

REPORT INFORMATION
  Report Type: Spontaneous
  Country: CA (occurrence: CA)
  Receive Date: 20140316
  Receipt Date: 20140316
  Transmission Date: 20141002
  Serious: Yes (Hospitalization)
  Sender: FDA-Public Use
  Company Number: CA-B.I. PHARMACEUTICALS,INC./RIDGEFIELD-2014-BI-10505CN

PATIENT
  Age: 76 Year
  Sex: Female

DRUGS (14)
  1. SPIRIVA [Suspect]
     Indication: PRODUCT USED FOR UNKNOWN INDICATION
     Route: 065
  2. METHOTREXATE [Suspect]
     Indication: PRODUCT USED FOR UNKNOWN INDICATION
     Route: 065
  3. ORENCIA [Suspect]
     Indication: PRODUCT USED FOR UNKNOWN INDICATION
     Dosage: 17.8571 MG
     Route: 042
  4. ORENCIA [Suspect]
     Route: 042
  5. ORENCIA [Suspect]
     Route: 042
  6. ORENCIA [Suspect]
     Route: 042
  7. ORENCIA [Suspect]
     Route: 042
  8. ORENCIA [Suspect]
     Dosage: 17.8571 MG
     Route: 042
  9. CALCIUM [Concomitant]
     Route: 065
  10. CORTISONE [Concomitant]
     Route: 065
  11. FOLIC ACID [Concomitant]
     Route: 065
  12. TYLENOL [Concomitant]
     Route: 051
  13. TYLENOL [Concomitant]
     Route: 065
  14. VITAMIN D [Concomitant]
     Route: 065

REACTIONS (12)
  - Bronchitis [Recovered/Resolved]
  - Contusion [Recovered/Resolved]
  - Cystitis [Recovered/Resolved]
  - Haematoma [Recovered/Resolved]
  - Haematoma [Recovered/Resolved]
  - Hypersensitivity [Recovered/Resolved]
  - Influenza [Recovered/Resolved]
  - Oedema peripheral [Recovered/Resolved]
  - Productive cough [Recovered/Resolved]
  - Pyrexia [Recovered/Resolved]
  - Respiratory tract congestion [Recovered/Resolved]
  - Urinary tract infection [Recovered/Resolved]
